FAERS Safety Report 17520731 (Version 10)
Quarter: 2021Q1

REPORT INFORMATION
  Report Type: Spontaneous
  Country: US (occurrence: US)
  Receive Date: 20200310
  Receipt Date: 20210329
  Transmission Date: 20210419
  Serious: Yes (Other)
  Sender: FDA-Public Use
  Company Number: US-PFIZER INC-2020103777

PATIENT
  Age: 61 Year
  Sex: Female
  Weight: 57.15 kg

DRUGS (8)
  1. IBRANCE [Suspect]
     Active Substance: PALBOCICLIB
     Dosage: UNK, CYCLIC, 2 WEEKS ON AND 1 WEEK OFF
     Dates: start: 202002
  2. IBRANCE [Suspect]
     Active Substance: PALBOCICLIB
     Dosage: 75 MG, 1X/DAY
     Route: 048
  3. IBRANCE [Suspect]
     Active Substance: PALBOCICLIB
     Dosage: 75 MG, UNK
  4. IBRANCE [Suspect]
     Active Substance: PALBOCICLIB
     Dosage: 120 MG
  5. IBRANCE [Suspect]
     Active Substance: PALBOCICLIB
     Dosage: 75 MG, CYCLIC (21 DAYS ONAND 7 DAYS OFF)
     Dates: start: 20200310
  6. IBRANCE [Suspect]
     Active Substance: PALBOCICLIB
     Dosage: 400 MG
  7. IBRANCE [Suspect]
     Active Substance: PALBOCICLIB
     Indication: BREAST CANCER METASTATIC
     Dosage: 125 MG, UNK
  8. LETROZOLE. [Suspect]
     Active Substance: LETROZOLE
     Indication: BREAST CANCER METASTATIC
     Dosage: UNK

REACTIONS (30)
  - Blood count abnormal [Unknown]
  - Disturbance in attention [Unknown]
  - Pain [Unknown]
  - Cough [Unknown]
  - Chest pain [Unknown]
  - Monocyte count decreased [Unknown]
  - Feeling abnormal [Not Recovered/Not Resolved]
  - Sleep disorder [Unknown]
  - Memory impairment [Unknown]
  - Dyspnoea [Unknown]
  - Stomatitis [Unknown]
  - Off label use [Unknown]
  - Lymphoedema [Unknown]
  - Speech disorder [Unknown]
  - Menopausal symptoms [Unknown]
  - Hyperhidrosis [Unknown]
  - Pruritus [Unknown]
  - Reading disorder [Unknown]
  - Neutrophil count decreased [Unknown]
  - Dizziness [Unknown]
  - Decreased appetite [Unknown]
  - Abdominal discomfort [Unknown]
  - Depression [Unknown]
  - Fatigue [Not Recovered/Not Resolved]
  - Emotional disorder [Unknown]
  - Hot flush [Not Recovered/Not Resolved]
  - Fear of injection [Unknown]
  - Product use issue [Unknown]
  - White blood cell count decreased [Not Recovered/Not Resolved]
  - Crying [Unknown]

NARRATIVE: CASE EVENT DATE: 20200413
